FAERS Safety Report 15799689 (Version 2)
Quarter: 2019Q4

REPORT INFORMATION
  Report Type: Spontaneous
  Country: FI (occurrence: FI)
  Receive Date: 20190108
  Receipt Date: 20191028
  Transmission Date: 20200122
  Serious: Yes (Other)
  Sender: FDA-Public Use
  Company Number: FI-MYLANLABS-2019M1000336

PATIENT
  Age: 40 Year
  Sex: Female

DRUGS (30)
  1. EMGESAN [Suspect]
     Active Substance: MAGNESIUM HYDROXIDE
     Dosage: IF NEEDED 125 MG, MAX 250 MG/DAY
     Route: 048
  2. OPAMOX [Suspect]
     Active Substance: OXAZEPAM
     Dosage: 15-30 MG AS NEEDED, MAX 30MG/DAY
     Route: 048
  3. LORAZEPAM. [Suspect]
     Active Substance: LORAZEPAM
     Indication: PRODUCT USED FOR UNKNOWN INDICATION
     Dosage: 2 MG/ML INJECTION, AS NECESSARY, 4 MG (MAX 8 MG/DAY).
     Route: 065
  4. TENOX                              /00393701/ [Suspect]
     Active Substance: TEMAZEPAM
     Dosage: 1 TABLET IN EVENING, MAX 20 MG/DAY
     Route: 048
  5. SEROQUEL [Suspect]
     Active Substance: QUETIAPINE FUMARATE
     Indication: PRODUCT USED FOR UNKNOWN INDICATION
     Dosage: 300 MG, 3X/DAY (TID)
     Route: 048
  6. KETIPINOR [Suspect]
     Active Substance: QUETIAPINE FUMARATE
     Dosage: 100MG +100MG +200 MG EV DAYUNK
     Route: 048
  7. OPAMOX [Suspect]
     Active Substance: OXAZEPAM
     Dosage: 15 MG, AS NEEDED (PRN)UNK
     Route: 048
  8. KETIPINOR [Suspect]
     Active Substance: QUETIAPINE FUMARATE
     Dosage: 50MG +50 MG + 200 MG EVERY DAYUNK
     Route: 048
     Dates: start: 20170922
  9. KETIPINOR [Suspect]
     Active Substance: QUETIAPINE FUMARATE
     Dosage: 100 MG, AS NEEDED (PRN); MAX 400 MG /DAYUNK
     Route: 048
  10. KETIPINOR [Suspect]
     Active Substance: QUETIAPINE FUMARATE
     Dosage: 2 TABLETS ONCE A DAY
     Route: 048
     Dates: start: 20170824
  11. OPAMOX [Suspect]
     Active Substance: OXAZEPAM
     Indication: PRODUCT USED FOR UNKNOWN INDICATION
     Dosage: 15 MG, 3X/DAY (TID)
     Route: 048
  12. SEROQUEL [Suspect]
     Active Substance: QUETIAPINE FUMARATE
     Dosage: UNK
  13. KETIPINOR [Suspect]
     Active Substance: QUETIAPINE FUMARATE
     Indication: PRODUCT USED FOR UNKNOWN INDICATION
     Dosage: INCREASED AS NEEDED (PRN) UP TO 600 MG DAILY
     Route: 048
  14. KETIPINOR [Suspect]
     Active Substance: QUETIAPINE FUMARATE
     Dosage: 100 MG 1 - 2 TAB DAILYUNK
     Route: 048
  15. KETIPINOR [Suspect]
     Active Substance: QUETIAPINE FUMARATE
     Dosage: 100 MG, AS NEEDED (PRN), ADDITIONALY MAXIMUM 300 MG DAILYUNK
     Route: 048
  16. KETIPINOR [Suspect]
     Active Substance: QUETIAPINE FUMARATE
     Dosage: 1-2 TABLETS A DAY.IF NEEDED INCREASED MAX 600 MG/DAY
     Route: 048
     Dates: start: 20170505
  17. ACETAMINOPHEN. [Suspect]
     Active Substance: ACETAMINOPHEN
     Indication: PRODUCT USED FOR UNKNOWN INDICATION
     Dosage: 1 G, AS NEEDED (PRN); MAX 3 G PER DAY
     Route: 048
  18. EMGESAN [Suspect]
     Active Substance: MAGNESIUM HYDROXIDE
     Indication: PRODUCT USED FOR UNKNOWN INDICATION
     Dosage: IF NEEDED 125 MG, MAX 250 MG/DAY
     Route: 048
  19. EMGESAN [Suspect]
     Active Substance: MAGNESIUM HYDROXIDE
     Dosage: IF NEEDED 125 MG, MAX 250 MG/DAY
  20. SEROQUEL [Suspect]
     Active Substance: QUETIAPINE FUMARATE
     Dosage: 400 MG, ONCE DAILY (QD)
     Route: 048
  21. SEROQUEL [Suspect]
     Active Substance: QUETIAPINE FUMARATE
     Dosage: 500 MG ONCE A DAY, ADDITIONALLY IF NEEDED
     Route: 048
  22. TENOX                              /00393701/ [Suspect]
     Active Substance: TEMAZEPAM
     Dosage: AS NECESSARY, UP TO MAX 20 MG/DAYUNK
     Route: 048
  23. OXAMIN [Suspect]
     Active Substance: OXAZEPAM
     Indication: PRODUCT USED FOR UNKNOWN INDICATION
     Dosage: IF NEEDED, MAX 45 MG/DAY
     Route: 048
  24. OPAMOX [Suspect]
     Active Substance: OXAZEPAM
     Dosage: IF NEEDED, MAX 30 MG/DAY
  25. SEROQUEL [Suspect]
     Active Substance: QUETIAPINE FUMARATE
     Dosage: 500 MG ONCE DAILY, ADDITIONALLY, AS NECESSARYUNK
     Route: 048
  26. PROPRANOLOL [Suspect]
     Active Substance: PROPRANOLOL HYDROCHLORIDE
     Indication: PRODUCT USED FOR UNKNOWN INDICATION
     Dosage: 100MG TABL. 1 CAPSULE/DAY
     Route: 048
     Dates: start: 20171020
  27. KETIPINOR [Suspect]
     Active Substance: QUETIAPINE FUMARATE
     Dosage: 200 MG, ONCE DAILY (QD)
     Route: 048
  28. TENOX                              /00393701/ [Suspect]
     Active Substance: TEMAZEPAM
     Indication: PRODUCT USED FOR UNKNOWN INDICATION
     Dosage: 10 MG, AS NEEDED (PRN);1 TAB IN THE EVENING
     Route: 048
  29. SEROQUEL [Suspect]
     Active Substance: QUETIAPINE FUMARATE
     Dosage: 1 DOSAGE FORM, QD
     Route: 048
     Dates: start: 20170922
  30. LORAZEPAM. [Suspect]
     Active Substance: LORAZEPAM
     Dosage: UNK, PRN
     Route: 065

REACTIONS (5)
  - Premature delivery [Unknown]
  - Live birth [Unknown]
  - Maternal exposure during pregnancy [Recovered/Resolved]
  - Anaemia [Unknown]
  - Malnutrition [Unknown]

NARRATIVE: CASE EVENT DATE: 20171106
